FAERS Safety Report 9548908 (Version 1)
Quarter: 2013Q3

REPORT INFORMATION
  Report Type: Spontaneous
  Country: US (occurrence: None)
  Receive Date: 20130719
  Receipt Date: 20130719
  Transmission Date: 20140515
  Serious: Yes (Other)
  Sender: FDA-Public Use
  Company Number: US-2013-10810

PATIENT
  Age: 74 Year
  Sex: Female

DRUGS (9)
  1. SAMSCA [Suspect]
     Indication: BLOOD SODIUM DECREASED
     Dates: start: 20130401, end: 20130419
  2. SYNTHROID (LEVOTHYROXINE SODIUM) [Concomitant]
  3. FOLIC ACID [Concomitant]
  4. PROTONIX [Concomitant]
  5. FERROUS SULFATE [Concomitant]
  6. COLACE [Concomitant]
  7. NORVASC (AMLODIPINE BESILATE) [Concomitant]
  8. LORTAB (HYDROCODONE BITARTRATE, PARACETAMOL, PROMETHAZINE HYDROCHLORIDE) [Concomitant]
  9. XANAX (ALPRAZOLAM) [Concomitant]

REACTIONS (1)
  - Rapid correction of hyponatraemia [None]
